FAERS Safety Report 24868150 (Version 2)
Quarter: 2025Q3

REPORT INFORMATION
  Report Type: Spontaneous
  Country: JP (occurrence: JP)
  Receive Date: 20250121
  Receipt Date: 20250810
  Transmission Date: 20251021
  Serious: Yes (Hospitalization, Other)
  Sender: ALEXION PHARMACEUTICALS
  Company Number: JP-ASTRAZENECA-250004747_013120_P_1

PATIENT
  Age: 67 Year
  Sex: Male
  Weight: 67 kg

DRUGS (13)
  1. DURVALUMAB [Suspect]
     Active Substance: DURVALUMAB
     Indication: Non-small cell lung cancer
     Dates: start: 20241025, end: 20241025
  2. PACLITAXEL [Suspect]
     Active Substance: PACLITAXEL
     Indication: Non-small cell lung cancer
     Dates: start: 20240902, end: 20241016
  3. CARBOPLATIN [Suspect]
     Active Substance: CARBOPLATIN
     Indication: Non-small cell lung cancer
     Dosage: 220 MILLIGRAM, QW
     Dates: start: 20240902, end: 20241008
  4. CARBOPLATIN [Suspect]
     Active Substance: CARBOPLATIN
     Dosage: 210 MILLIGRAM, QW
     Dates: start: 20241016, end: 20241016
  5. PITAVASTATIN CALCIUM [Concomitant]
     Active Substance: PITAVASTATIN CALCIUM
     Dosage: AFTER BREAKFAST
     Dates: start: 20240925
  6. BEZAFIBRATE [Concomitant]
     Active Substance: BEZAFIBRATE
     Dosage: AFTER BREAKFAST AND DINNER
     Dates: start: 20230923
  7. CALCIUM POLYSTYRENE SULFONATE [Concomitant]
     Active Substance: CALCIUM POLYSTYRENE SULFONATE
     Dosage: AFTER BREAKFAST AND DINNER
     Dates: start: 20240914, end: 20241117
  8. URSODIOL [Concomitant]
     Active Substance: URSODIOL
     Dosage: AFTER BREAKFAST AND DINNER
     Dates: start: 20240923, end: 20241120
  9. TIMOLOL [Concomitant]
     Active Substance: TIMOLOL
  10. TRUSOPT [Concomitant]
     Active Substance: DORZOLAMIDE HYDROCHLORIDE
  11. LATANOPROST [Concomitant]
     Active Substance: LATANOPROST
  12. LATANOPROST [Concomitant]
     Active Substance: LATANOPROST
  13. Heparinoid [Concomitant]

REACTIONS (1)
  - Immune-mediated hepatic disorder [Recovering/Resolving]

NARRATIVE: CASE EVENT DATE: 20241108
